FAERS Safety Report 20049158 (Version 2)
Quarter: 2021Q4

REPORT INFORMATION
  Report Type: Spontaneous
  Country: US (occurrence: US)
  Receive Date: 20211109
  Receipt Date: 20211202
  Transmission Date: 20220303
  Serious: Yes (Other)
  Sender: FDA-Public Use
  Company Number: US-TAKEDA-2021TUS068341

PATIENT
  Sex: Male
  Weight: 64 kg

DRUGS (2)
  1. VYVANSE [Suspect]
     Active Substance: LISDEXAMFETAMINE DIMESYLATE
     Indication: Attention deficit hyperactivity disorder
     Dosage: 20 MILLIGRAM
     Route: 065
     Dates: start: 201704
  2. VYVANSE [Suspect]
     Active Substance: LISDEXAMFETAMINE DIMESYLATE
     Dosage: 40 MILLIGRAM, QD
     Route: 048
     Dates: start: 20170512, end: 20170612

REACTIONS (9)
  - Osteonecrosis [Unknown]
  - Joint effusion [Unknown]
  - Knee deformity [Unknown]
  - Bone marrow oedema [Unknown]
  - Chondropathy [Unknown]
  - Catatonia [Unknown]
  - Agitation [Unknown]
  - Palpitations [Unknown]
  - Therapy cessation [Unknown]

NARRATIVE: CASE EVENT DATE: 20170101
